FAERS Safety Report 6521941-5 (Version None)
Quarter: 2009Q4

REPORT INFORMATION
  Report Type: 
  Country: None (occurrence: None)
  Receive Date: 20091230
  Receipt Date: 20091221
  Transmission Date: 20100525
  Serious: Yes (Hospitalization)
  Sender: FDA-Public Use
  Company Number: JP-TEVA-218773ISR

PATIENT
  Age: 52 Year
  Sex: Male

DRUGS (2)
  1. PACLITAXEL [Suspect]
     Indication: GASTRIC CANCER
  2. S-1 [Suspect]
     Indication: GASTRIC CANCER
     Route: 048

REACTIONS (2)
  - AMOEBIC COLITIS [None]
  - INTESTINAL PERFORATION [None]
